FAERS Safety Report 6456299-3 (Version None)
Quarter: 2009Q4

REPORT INFORMATION
  Report Type: 
  Country: None (occurrence: None)
  Receive Date: 20091125
  Receipt Date: 20091112
  Transmission Date: 20100525
  Serious: Yes (Hospitalization)
  Sender: FDA-Public Use
  Company Number: SE-ROCHE-668838

PATIENT
  Age: 59 Year
  Sex: Male

DRUGS (11)
  1. PEGASYS [Suspect]
     Indication: HEPATITIS
     Dosage: DRUG NAME REPORTED: PEGASYS SOL FOR INJECTION 180 MIKROG/ML.  DOSE REPORTED: 180 RGW.
     Route: 042
     Dates: start: 20090901
  2. PEGASYS [Suspect]
     Dosage: DOSE WAS REDUCED.
     Route: 042
     Dates: start: 20090901
  3. ALVEDON [Concomitant]
     Dosage: DRUG NAME REPORTED AS ALVEDON ORODISPERSIBLE TABL 500 MG.
  4. B-KOMBIN FORTE N [Concomitant]
     Dosage: DRUG NAME REPORTED: B-KOMBIN FORTE N FC TABL.
  5. TESTOSTERONE [Concomitant]
     Dosage: DRUG NAME REPORTED AS TESTOGEL GEL, SACHET 50 MG.
  6. COPEGUS [Concomitant]
     Dosage: DRUG NAME REPORTED: COPEGUS FC TABL 200 MG.
     Dates: start: 20090901
  7. PRIMPERAN TAB [Concomitant]
     Dosage: DRUG NAME REPORTED: PRIMPERAN TABL 10 MG.
  8. KONAKION [Concomitant]
     Dosage: DRUG NAME REPORTED: KONAKION CHEWABLE TABL 10 MG.
  9. INDERAL [Concomitant]
     Dosage: DRUG NAME REPORTED: INDERAL TABL 10 MG.
  10. DUROFERON [Concomitant]
     Dosage: DRUG NAME REPORTED: DUROFERON PROLONGED- RELEASE TABL 100 MG FE2+.
  11. SPIRONOLAKTON [Concomitant]
     Dosage: DRUG NAME REPORTED: SPIRONOLAKTON TABL 50 MG.

REACTIONS (3)
  - HYPONATRAEMIA [None]
  - THROMBOCYTOPENIA [None]
  - VOMITING [None]
